FAERS Safety Report 21303127 (Version 2)
Quarter: 2022Q4

REPORT INFORMATION
  Report Type: Report from Study
  Country: US (occurrence: US)
  Receive Date: 20220907
  Receipt Date: 20221014
  Transmission Date: 20230112
  Serious: Yes (Other)
  Sender: FDA-Public Use
  Company Number: US-UCBSA-2022052353

PATIENT
  Age: 81 Year
  Sex: Male

DRUGS (1)
  1. LACOSAMIDE [Suspect]
     Active Substance: LACOSAMIDE
     Indication: Seizure
     Dosage: 50MG TAKE 1 TABLET QAM AND 2 TABLETS QPM

REACTIONS (7)
  - Cataract [Unknown]
  - Cataract operation [Unknown]
  - Chest injury [Unknown]
  - Head injury [Unknown]
  - Rib fracture [Unknown]
  - Fall [Unknown]
  - Product use issue [Unknown]

NARRATIVE: CASE EVENT DATE: 20220801
